FAERS Safety Report 23137599 (Version 5)
Quarter: 2025Q4

REPORT INFORMATION
  Report Type: Spontaneous
  Country: JP (occurrence: JP)
  Receive Date: 20231102
  Receipt Date: 20251224
  Transmission Date: 20260119
  Serious: Yes (Hospitalization, Other)
  Sender: BAXTER
  Company Number: JP-shionogi-202312628

PATIENT
  Age: 63 Year
  Sex: Female

DRUGS (2)
  1. CYCLOPHOSPHAMIDE [Suspect]
     Active Substance: CYCLOPHOSPHAMIDE
     Indication: Breast cancer recurrent
     Dosage: 4 GRAM PER SQUARE METRE, TOTAL DOSE, AS A PART OF EC THERAPY
     Route: 065
  2. EPIRUBICIN [Suspect]
     Active Substance: EPIRUBICIN
     Indication: Breast cancer recurrent
     Dosage: AS A PART OF EC THERAPY, TOTAL DOSE OF 513 MG/M2
     Route: 065

REACTIONS (12)
  - Cardiac failure [Recovering/Resolving]
  - Dyspnoea exertional [Recovering/Resolving]
  - Oedema peripheral [Recovering/Resolving]
  - Pulmonary congestion [Recovering/Resolving]
  - Cardiomegaly [Recovering/Resolving]
  - Sinus tachycardia [Recovering/Resolving]
  - Bundle branch block right [Recovering/Resolving]
  - Left ventricular dilatation [Recovering/Resolving]
  - Ejection fraction decreased [Recovering/Resolving]
  - Atrial fibrillation [Recovering/Resolving]
  - Pulmonary hypertension [Recovering/Resolving]
  - Chronic myocarditis [Recovering/Resolving]
